FAERS Safety Report 8476562 (Version 7)
Quarter: 2013Q3

REPORT INFORMATION
  Report Type: Report from Study
  Country: US (occurrence: US)
  Receive Date: 20120326
  Receipt Date: 20130926
  Transmission Date: 20140515
  Serious: Yes (Death, Hospitalization)
  Sender: FDA-Public Use
  Company Number: US-ACTELION-A-US2010-40597

PATIENT
  Age: 37 Year
  Sex: Female

DRUGS (1)
  1. TRACLEER [Suspect]
     Indication: PULMONARY ARTERIAL HYPERTENSION
     Dosage: UNK
     Route: 048
     Dates: start: 20060710

REACTIONS (11)
  - Death [Fatal]
  - Infection [Unknown]
  - Cyst [Unknown]
  - Laceration [Unknown]
  - Scleroderma [Not Recovered/Not Resolved]
  - Impaired healing [Not Recovered/Not Resolved]
  - Wound treatment [Unknown]
  - Blister [Unknown]
  - Localised infection [Unknown]
  - Skin ulcer [Recovering/Resolving]
  - Treatment noncompliance [Unknown]
